FAERS Safety Report 15772295 (Version 3)
Quarter: 2019Q1

REPORT INFORMATION
  Report Type: Spontaneous
  Country: IE (occurrence: IE)
  Receive Date: 20181228
  Receipt Date: 20190307
  Transmission Date: 20190417
  Serious: Yes (Death, Other)
  Sender: FDA-Public Use
  Company Number: IE-MYLANLABS-2018M1097395

PATIENT
  Age: 55 Year
  Sex: Male

DRUGS (1)
  1. CLOZARIL [Suspect]
     Active Substance: CLOZAPINE
     Indication: SCHIZOPHRENIA
     Dosage: UNK
     Route: 048
     Dates: start: 20120511

REACTIONS (2)
  - Ejection fraction decreased [Unknown]
  - Death [Fatal]

NARRATIVE: CASE EVENT DATE: 2018
